FAERS Safety Report 7061795-4 (Version None)
Quarter: 2010Q4

REPORT INFORMATION
  Report Type: 
  Country: None (occurrence: None)
  Receive Date: 20101026
  Receipt Date: 20101019
  Transmission Date: 20110411
  Serious: Yes (Other)
  Sender: FDA-Public Use
  Company Number: MU-ROCHE-735122

PATIENT
  Sex: Female
  Weight: 53 kg

DRUGS (4)
  1. BONIVA [Suspect]
     Indication: OSTEOPOROSIS POSTMENOPAUSAL
     Dosage: DOSE: 3MG/3ML
     Route: 042
     Dates: start: 20101016
  2. LIPITOR [Concomitant]
     Indication: DYSLIPIDAEMIA
     Dosage: FREQUENCY:NOCTE, DRUG: LIPITOR 20 MG
     Route: 048
  3. ELTROXIN [Concomitant]
     Indication: HYPOTHYROIDISM
     Dosage: DRUG: ELTROXINE 75 MCG, FREQUENCY:MANE.
     Route: 048
  4. PROTHIADEN [Concomitant]
     Indication: ANTIDEPRESSANT THERAPY
     Dosage: DRUG: PROTHIADEN 75 MG, FREQUENCY: NOCTE.
     Route: 048

REACTIONS (4)
  - CHILLS [None]
  - CONVULSION [None]
  - DRY MOUTH [None]
  - PAIN [None]
